FAERS Safety Report 13929069 (Version 1)
Quarter: 2017Q3

REPORT INFORMATION
  Report Type: Spontaneous
  Country: FR (occurrence: FR)
  Receive Date: 20170901
  Receipt Date: 20170901
  Transmission Date: 20171127
  Serious: Yes (Life-Threatening)
  Sender: FDA-Public Use
  Company Number: FR-FRESENIUS KABI-FK201707347

PATIENT
  Age: 70 Year
  Sex: Female

DRUGS (6)
  1. ADRENALINE RENAUDIN [Suspect]
     Active Substance: EPINEPHRINE BITARTRATE
     Indication: INFILTRATION ANAESTHESIA
     Route: 065
     Dates: start: 20170728, end: 20170728
  2. PROFENID [Suspect]
     Active Substance: KETOPROFEN
     Indication: INFILTRATION ANAESTHESIA
     Route: 065
     Dates: start: 20170728, end: 20170728
  3. EPHEDRINE. [Suspect]
     Active Substance: EPHEDRINE
     Indication: HYPOTENSION
     Route: 042
     Dates: start: 20170728, end: 20170728
  4. ROPIVACAINHYDROCHLORID KABI 5 MG / ML [Suspect]
     Active Substance: ROPIVACAINE HYDROCHLORIDE
     Indication: INFILTRATION ANAESTHESIA
     Route: 065
     Dates: start: 20170728, end: 20170728
  5. TOPALGIC (TRAMADOL HYDROCHLORIDE) [Suspect]
     Active Substance: TRAMADOL HYDROCHLORIDE
     Indication: ANALGESIC INTERVENTION SUPPORTIVE THERAPY
     Route: 065
     Dates: start: 20170728, end: 20170728
  6. EXACYL [Suspect]
     Active Substance: TRANEXAMIC ACID
     Indication: INFILTRATION ANAESTHESIA
     Route: 065
     Dates: start: 20170728, end: 20170728

REACTIONS (1)
  - Anaphylactic shock [Recovered/Resolved]

NARRATIVE: CASE EVENT DATE: 20170728
